FAERS Safety Report 12993381 (Version 1)
Quarter: 2016Q4

REPORT INFORMATION
  Report Type: Spontaneous
  Country: RU (occurrence: RU)
  Receive Date: 20161202
  Receipt Date: 20161202
  Transmission Date: 20170207
  Serious: Yes (Other)
  Sender: FDA-Public Use
  Company Number: RU-ASTRAZENECA-2016SF26906

PATIENT
  Age: 51 Year
  Sex: Male
  Weight: 94 kg

DRUGS (6)
  1. TORASEMIDE [Concomitant]
     Active Substance: TORSEMIDE
  2. BISOPROLOL [Concomitant]
     Active Substance: BISOPROLOL
  3. BRILINTA [Suspect]
     Active Substance: TICAGRELOR
     Indication: MYOCARDIAL INFARCTION
     Route: 048
  4. VEROSPIRON [Concomitant]
     Active Substance: SPIRONOLACTONE
  5. ATORVASTATIN [Concomitant]
     Active Substance: ATORVASTATIN
  6. PERINEVA [Concomitant]
     Active Substance: PERINDOPRIL ERBUMINE

REACTIONS (1)
  - Blood pressure increased [Not Recovered/Not Resolved]

NARRATIVE: CASE EVENT DATE: 201605
